FAERS Safety Report 23709748 (Version 2)
Quarter: 2024Q2

REPORT INFORMATION
  Report Type: Spontaneous
  Country: US (occurrence: US)
  Receive Date: 20240404
  Receipt Date: 20240411
  Transmission Date: 20240715
  Serious: No
  Sender: FDA-Public Use
  Company Number: US-ABBVIE-5701070

PATIENT
  Sex: Female
  Weight: 91 kg

DRUGS (16)
  1. BENTYL [Suspect]
     Active Substance: DICYCLOMINE HYDROCHLORIDE
     Indication: Product used for unknown indication
     Dosage: FORM STRENGTH: 10 MG/ML
     Route: 065
  2. TOPIRAMATE [Concomitant]
     Active Substance: TOPIRAMATE
     Indication: Migraine
     Dosage: TOPIRAMATE ER
  3. CHANTIX [Concomitant]
     Active Substance: VARENICLINE TARTRATE
     Indication: Smoking cessation therapy
  4. ABILIFY [Concomitant]
     Active Substance: ARIPIPRAZOLE
     Indication: Depression
  5. LEVOTHYROXINE [Concomitant]
     Active Substance: LEVOTHYROXINE\LEVOTHYROXINE SODIUM
     Indication: Hypothyroidism
  6. PROVIGIL [Concomitant]
     Active Substance: MODAFINIL
     Indication: Narcolepsy
  7. VESICARE [Concomitant]
     Active Substance: SOLIFENACIN SUCCINATE
     Indication: Product used for unknown indication
     Dosage: FORM STRENGTH: 10 MILLIGRAM
  8. FLEXERIL [Concomitant]
     Active Substance: CYCLOBENZAPRINE HYDROCHLORIDE
     Indication: Spondylitis
     Dosage: FORM STRENGTH: 10 MILLIGRAM
  9. ESTROGENS [Concomitant]
     Active Substance: ESTROGENS
     Indication: Product used for unknown indication
     Dosage: FORM STRENGTH: 0.1 MILLIGRAM; FREQUENCY TEXT: DAILY
  10. NEXIUM [Concomitant]
     Active Substance: ESOMEPRAZOLE MAGNESIUM
     Indication: Gastrooesophageal reflux disease
  11. ASPIRIN [Concomitant]
     Active Substance: ASPIRIN
     Indication: Product used for unknown indication
  12. LIPITOR [Concomitant]
     Active Substance: ATORVASTATIN CALCIUM
     Indication: Blood cholesterol increased
  13. PRISTIQ EXTENDED-RELEASE [Concomitant]
     Active Substance: DESVENLAFAXINE SUCCINATE
     Indication: Depression
     Dosage: FORM STRENGTH: 100 MILLIGRAM
  14. WAKIX [Concomitant]
     Active Substance: PITOLISANT HYDROCHLORIDE
     Indication: Narcolepsy
     Dosage: FORM STRENGTH: 17.5 MILLIGRAM
  15. LATANOPROST [Concomitant]
     Active Substance: LATANOPROST
     Indication: Glaucoma
  16. METOCLOPRAMIDE [Concomitant]
     Active Substance: METOCLOPRAMIDE
     Indication: Gastrooesophageal reflux disease

REACTIONS (2)
  - Hypersensitivity [Recovered/Resolved]
  - Tachycardia [Recovered/Resolved]
